FAERS Safety Report 24921301 (Version 1)
Quarter: 2025Q1

REPORT INFORMATION
  Report Type: Spontaneous
  Country: US (occurrence: US)
  Receive Date: 20250204
  Receipt Date: 20250204
  Transmission Date: 20250408
  Serious: Yes (Hospitalization)
  Sender: MACLEODS
  Company Number: US-MACLEODS PHARMA-MAC2025051473

PATIENT

DRUGS (1)
  1. SEVELAMER [Suspect]
     Active Substance: SEVELAMER
     Indication: Hyperphosphataemia
     Route: 065

REACTIONS (8)
  - Colitis ischaemic [Unknown]
  - Perforation [Unknown]
  - Colon injury [Unknown]
  - Crystal deposit intestine [Unknown]
  - Vascular wall hypertrophy [Unknown]
  - Large intestinal ulcer [Unknown]
  - Gastrointestinal necrosis [Unknown]
  - Serositis [Unknown]
